FAERS Safety Report 25259786 (Version 1)
Quarter: 2025Q2

REPORT INFORMATION
  Report Type: Spontaneous
  Country: NL (occurrence: NL)
  Receive Date: 20250501
  Receipt Date: 20250501
  Transmission Date: 20250717
  Serious: Yes (Other)
  Sender: AMGEN
  Company Number: NL-AMGEN-NLDSP2025080033

PATIENT

DRUGS (2)
  1. ADALIMUMAB [Suspect]
     Active Substance: ADALIMUMAB
     Indication: Axial spondyloarthritis
     Route: 065
  2. ETANERCEPT [Suspect]
     Active Substance: ETANERCEPT
     Indication: Axial spondyloarthritis
     Route: 065

REACTIONS (6)
  - Uveitis [Unknown]
  - Inflammatory bowel disease [Unknown]
  - Psoriasis [Unknown]
  - Arthritis [Unknown]
  - Enthesopathy [Unknown]
  - Axial spondyloarthritis [Unknown]
